FAERS Safety Report 8333656-1 (Version None)
Quarter: 2012Q2

REPORT INFORMATION
  Report Type: 
  Country: None (occurrence: None)
  Receive Date: 20120503
  Receipt Date: 20120419
  Transmission Date: 20120825
  Serious: Yes (Disabling)
  Sender: FDA-Public Use
  Company Number: GB-AMGEN-GBRCT2012026613

PATIENT
  Age: 71 Year
  Sex: Female
  Weight: 62.993 kg

DRUGS (2)
  1. METHOTREXATE [Concomitant]
     Dosage: UNK
     Dates: start: 20110302
  2. ETANERCEPT [Suspect]
     Indication: RHEUMATOID ARTHRITIS
     Dosage: 25 MG, Q2WK
     Dates: start: 20040113

REACTIONS (1)
  - ANKLE FRACTURE [None]
